FAERS Safety Report 25329375 (Version 1)
Quarter: 2025Q2

REPORT INFORMATION
  Report Type: Report from Study
  Country: US (occurrence: US)
  Receive Date: 20250519
  Receipt Date: 20250519
  Transmission Date: 20250717
  Serious: No
  Sender: ACADIA PHARMACEUTICALS
  Company Number: US-ACADIA PHARMACEUTICALS INC.-ACA-2025-TRF-005838

PATIENT
  Sex: Female

DRUGS (1)
  1. DAYBUE [Suspect]
     Active Substance: TROFINETIDE
     Indication: Rett syndrome
     Dosage: 21 MILLILITER, BID
     Route: 065

REACTIONS (4)
  - Abdominal distension [Unknown]
  - Flatulence [Unknown]
  - Drug effect less than expected [Unknown]
  - Underdose [Unknown]
